FAERS Safety Report 10166429 (Version 2)
Quarter: 2014Q2

REPORT INFORMATION
  Report Type: Spontaneous
  Country: JP (occurrence: JP)
  Receive Date: 20140512
  Receipt Date: 20140528
  Transmission Date: 20141212
  Serious: Yes (Hospitalization)
  Sender: FDA-Public Use
  Company Number: JP-ELI_LILLY_AND_COMPANY-JP201405001431

PATIENT
  Age: 66 Year
  Sex: Female

DRUGS (8)
  1. EVISTA [Suspect]
     Indication: OSTEOPOROSIS POSTMENOPAUSAL
     Dosage: 60 MG, QD
     Route: 048
     Dates: start: 20130201
  2. THYRADIN [Concomitant]
     Dosage: UNK
  3. CRESTOR [Concomitant]
     Dosage: UNK
  4. SEROQUEL [Concomitant]
  5. MYSLEE [Concomitant]
  6. KM-SAN [Concomitant]
     Route: 048
  7. BALDEKEN-R [Concomitant]
     Route: 048
  8. PAXIL [Concomitant]

REACTIONS (1)
  - Breast cancer [Recovered/Resolved]
